FAERS Safety Report 24190288 (Version 1)
Quarter: 2024Q3

REPORT INFORMATION
  Report Type: Spontaneous
  Country: AU (occurrence: AU)
  Receive Date: 20240808
  Receipt Date: 20240808
  Transmission Date: 20241016
  Serious: Yes (Hospitalization)
  Sender: AMGEN
  Company Number: AU-AMGEN-AUSSP2024155101

PATIENT
  Age: 47 Year
  Sex: Female

DRUGS (8)
  1. BEVACIZUMAB [Suspect]
     Active Substance: BEVACIZUMAB
     Indication: Neoplasm malignant
     Dosage: 370 MILLIGRAM, CYCLICAL
     Route: 042
     Dates: start: 20240304
  2. LEUCOVORIN CALCIUM [Suspect]
     Active Substance: LEUCOVORIN CALCIUM
     Indication: Neoplasm malignant
     Dosage: 744 MILLIGRAM, CYCLICAL
     Route: 042
     Dates: start: 20240304
  3. FLUOROURACIL [Suspect]
     Active Substance: FLUOROURACIL
     Indication: Neoplasm malignant
     Dosage: 4500 MILLIGRAM, CYCLICAL
     Route: 042
     Dates: start: 20240304
  4. IRINOTECAN HYDROCHLORIDE [Suspect]
     Active Substance: IRINOTECAN HYDROCHLORIDE
     Indication: Neoplasm malignant
     Dosage: 330 MILLIGRAM, CYCLICAL
     Route: 042
     Dates: start: 20240304
  5. PANADOL [Concomitant]
     Active Substance: ACETAMINOPHEN
     Indication: Pain
     Dosage: UNK UNK, AS NECESSARY
     Route: 048
     Dates: start: 202403
  6. ATROPINE [Concomitant]
     Active Substance: ATROPINE
     Dosage: 600 MILLIGRAM, CYCLICAL
     Route: 042
     Dates: start: 20240304
  7. DEXAMETHASONE [Concomitant]
     Active Substance: DEXAMETHASONE
     Dosage: 4 MILLIGRAM, CYCLICAL
     Route: 048
     Dates: start: 20240304
  8. AKYNZEO [Concomitant]
     Dosage: UNK
     Dates: start: 20240304

REACTIONS (1)
  - Pleuritic pain [Not Recovered/Not Resolved]

NARRATIVE: CASE EVENT DATE: 20240601
